FAERS Safety Report 21928539 (Version 1)
Quarter: 2023Q1

REPORT INFORMATION
  Report Type: Spontaneous
  Country: US (occurrence: US)
  Receive Date: 20230130
  Receipt Date: 20230130
  Transmission Date: 20230417
  Serious: No
  Sender: FDA-Public Use
  Company Number: US-drreddys-SPO/USA/22/0159227

PATIENT
  Age: 74 Year
  Sex: Male

DRUGS (19)
  1. LENALIDOMIDE [Suspect]
     Active Substance: LENALIDOMIDE
     Indication: Myelodysplastic syndrome
     Dosage: FOR 21 DAYS ON, FOLLOWED BY 7 DAYS OFF
     Route: 048
  2. LENALIDOMIDE [Suspect]
     Active Substance: LENALIDOMIDE
     Dosage: FOR 21 DAYS ON, FOLLOWED BY 7 DAYS OFF
     Route: 048
     Dates: start: 20220908
  3. LENALIDOMIDE [Suspect]
     Active Substance: LENALIDOMIDE
     Dosage: FOR 21 DAYS ON, FOLLOWED BY 7 DAYS OFF
     Route: 048
     Dates: start: 20221027
  4. Cyanocobalamin SOL 2000MCG [Concomitant]
     Indication: Product used for unknown indication
  5. METFORMIN H TAB 1000MG [Concomitant]
     Indication: Product used for unknown indication
  6. OMEPRAZOLE CPD 40MG [Concomitant]
     Indication: Product used for unknown indication
  7. PRAVASTATIN TAB 80MG [Concomitant]
     Indication: Product used for unknown indication
  8. LACTULOSE SOL 20GM/30ML [Concomitant]
     Indication: Product used for unknown indication
     Dosage: 20GM/30ML
  9. MIRALAX POW 17GM/SCOOP [Concomitant]
     Indication: Product used for unknown indication
     Dosage: /SCOOP
  10. ALPRAZOLAM TBD 2MG [Concomitant]
     Indication: Product used for unknown indication
  11. ASPIRIN TBE 81MG [Concomitant]
     Indication: Product used for unknown indication
  12. ATENOLOL TAB 50MG [Concomitant]
     Indication: Product used for unknown indication
  13. FLUDROCORTIS TAB 0.1MG [Concomitant]
     Indication: Product used for unknown indication
  14. FUROSEMIDE TAB 80MG [Concomitant]
     Indication: Product used for unknown indication
  15. GLIPIZIDE [Concomitant]
     Active Substance: GLIPIZIDE
     Indication: Product used for unknown indication
  16. LOSARTAN POT TAB 50MG [Concomitant]
     Indication: Product used for unknown indication
  17. MAGNESIUM TAB 250MG [Concomitant]
     Indication: Product used for unknown indication
  18. NEURONTIN CAP 300MG [Concomitant]
     Indication: Product used for unknown indication
  19. POTASSIUM CH PAC 20MEQ [Concomitant]
     Indication: Product used for unknown indication

REACTIONS (3)
  - Constipation [Not Recovered/Not Resolved]
  - Back pain [Not Recovered/Not Resolved]
  - Musculoskeletal chest pain [Not Recovered/Not Resolved]
